FAERS Safety Report 9183487 (Version 1)
Quarter: 2013Q1

REPORT INFORMATION
  Report Type: Spontaneous
  Country: US (occurrence: US)
  Receive Date: 20130322
  Receipt Date: 20130322
  Transmission Date: 20140127
  Serious: No
  Sender: FDA-Public Use
  Company Number: US-BRISTOL-MYERS SQUIBB COMPANY-16430134

PATIENT
  Age: 77 Year
  Sex: Male
  Weight: 102 kg

DRUGS (3)
  1. ERBITUX [Suspect]
     Indication: COLON CANCER
     Dosage: RECENT INF ON 24FEB2012
     Route: 042
     Dates: start: 20111010
  2. 5-FLUOROURACIL [Suspect]
     Dosage: 3 WEEKS ON,1 WEEK OFF
     Route: 042
  3. LEUCOVORIN [Suspect]
     Dosage: 3 WEEKS ON, 1 WEEK OFF
     Route: 042

REACTIONS (2)
  - Rash [Recovered/Resolved]
  - Diarrhoea [Unknown]
